FAERS Safety Report 4982942-1 (Version None)
Quarter: 2006Q2

REPORT INFORMATION
  Report Type: 
  Country: None (occurrence: None)
  Receive Date: 20060420
  Receipt Date: 20060417
  Transmission Date: 20061013
  Serious: Yes (Death)
  Sender: FDA-Public Use
  Company Number: 2005040335

PATIENT
  Age: 70 Year
  Sex: Male
  Weight: 95.2554 kg

DRUGS (5)
  1. BEXTRA [Suspect]
     Indication: ARTHRITIS
     Dosage: 10 MG (10 MG, 1 IN 1 D),
     Dates: start: 20040101
  2. GLYBURIDE [Concomitant]
  3. ACARBOSE (ACARBOSE) [Concomitant]
  4. CLOPIDOGREL BISULFATE (CLOPIDOGREL BISULFATE) [Concomitant]
  5. HYDROCHLOROTHIAZIDE [Concomitant]

REACTIONS (7)
  - DRUG INEFFECTIVE [None]
  - ECONOMIC PROBLEM [None]
  - HYPOKINESIA [None]
  - MUSCULOSKELETAL STIFFNESS [None]
  - PAIN [None]
  - SWELLING [None]
  - TREATMENT NONCOMPLIANCE [None]
